FAERS Safety Report 7425959-X (Version None)
Quarter: 2011Q2

REPORT INFORMATION
  Report Type: 
  Country: None (occurrence: None)
  Receive Date: 20110420
  Receipt Date: 20110411
  Transmission Date: 20111010
  Serious: Yes (Hospitalization)
  Sender: FDA-Public Use
  Company Number: US-JNJFOC-20110405161

PATIENT
  Sex: Male
  Weight: 92.53 kg

DRUGS (4)
  1. DURAGESIC [Suspect]
     Indication: BACK PAIN
     Route: 062
  2. HIGH BLOOD PRESSURE MEDICATION NOS [Concomitant]
     Indication: HYPERTENSION
     Route: 065
  3. DURAGESIC [Suspect]
     Route: 062
  4. UNKNOWN MEDICATION [Concomitant]
     Indication: ARTHRITIS
     Route: 065

REACTIONS (3)
  - ABDOMINAL DISTENSION [None]
  - VOMITING [None]
  - DRUG DOSE OMISSION [None]
